FAERS Safety Report 20514064 (Version 1)
Quarter: 2022Q1

REPORT INFORMATION
  Report Type: Spontaneous
  Country: US (occurrence: US)
  Receive Date: 20220224
  Receipt Date: 20220224
  Transmission Date: 20220423
  Serious: No
  Sender: FDA-Public Use
  Company Number: US-GILEAD-2022-0570413

PATIENT
  Age: 55 Year
  Sex: Female

DRUGS (6)
  1. AMBRISENTAN [Suspect]
     Active Substance: AMBRISENTAN
     Indication: Respiratory disorder
     Dosage: UNK
     Route: 065
  2. SELEXIPAG [Suspect]
     Active Substance: SELEXIPAG
     Indication: Pulmonary arterial hypertension
     Dosage: 20000 UG
     Route: 048
  3. REVATIO [Concomitant]
     Active Substance: SILDENAFIL CITRATE
  4. COUMADIN [Concomitant]
     Active Substance: WARFARIN SODIUM
  5. CITRATE [Concomitant]
     Active Substance: CITRIC ACID MONOHYDRATE
  6. WARFARIN SODIUM [Concomitant]
     Active Substance: WARFARIN SODIUM

REACTIONS (10)
  - Respiratory disorder [Unknown]
  - Product use issue [Unknown]
  - Illness [Unknown]
  - Pain [Unknown]
  - Malaise [Unknown]
  - Stress [Unknown]
  - Feeling abnormal [Unknown]
  - Gait disturbance [Unknown]
  - Chest pain [Unknown]
  - Dyspnoea [Unknown]
